FAERS Safety Report 9552691 (Version 1)
Quarter: 2013Q3

REPORT INFORMATION
  Report Type: Spontaneous
  Country: US (occurrence: US)
  Receive Date: 20130925
  Receipt Date: 20130925
  Transmission Date: 20140515
  Serious: No
  Sender: FDA-Public Use
  Company Number: US-PURDUE-USA-2012-0093075

PATIENT
  Sex: Female
  Weight: 95.24 kg

DRUGS (3)
  1. MORPHINE SULFATE EXTENDED-RELEASE TABLETS (RHODES 74-769, 74-862) [Suspect]
     Indication: PAIN
     Dosage: 60 MG, TID
     Route: 048
  2. MSIR CAPSULES [Concomitant]
     Indication: BREAKTHROUGH PAIN
     Dosage: 30 MG, PRN
     Route: 048
  3. ATIVAN [Concomitant]
     Indication: AGITATION
     Dosage: UNK
     Route: 048

REACTIONS (9)
  - Drug withdrawal syndrome [Unknown]
  - Feeling jittery [Not Recovered/Not Resolved]
  - Dyspepsia [Unknown]
  - Malaise [Not Recovered/Not Resolved]
  - Dysgeusia [Unknown]
  - Blood pressure decreased [Unknown]
  - Product taste abnormal [Unknown]
  - Headache [Unknown]
  - Memory impairment [Unknown]
